FAERS Safety Report 21348262 (Version 1)
Quarter: 2022Q3

REPORT INFORMATION
  Report Type: Spontaneous
  Country: CN (occurrence: None)
  Receive Date: 20220919
  Receipt Date: 20220919
  Transmission Date: 20221026
  Serious: Yes (Hospitalization, Other)
  Sender: FDA-Public Use
  Company Number: 2022A317275

PATIENT
  Age: 20365 Day
  Sex: Male
  Weight: 59 kg

DRUGS (2)
  1. TAGRISSO [Suspect]
     Active Substance: OSIMERTINIB
     Indication: Lung adenocarcinoma
     Route: 048
     Dates: start: 20211125, end: 20220802
  2. TAGRISSO [Suspect]
     Active Substance: OSIMERTINIB
     Indication: Folliculitis
     Route: 048
     Dates: start: 20211125, end: 20220802

REACTIONS (2)
  - Interstitial lung disease [Recovering/Resolving]
  - Immune-mediated lung disease [Unknown]

NARRATIVE: CASE EVENT DATE: 20220713
